FAERS Safety Report 10508891 (Version 1)
Quarter: 2014Q4

REPORT INFORMATION
  Report Type: Spontaneous
  Country: US (occurrence: None)
  Receive Date: 20141008
  Receipt Date: 20141008
  Transmission Date: 20150528
  Serious: Yes (Other)
  Sender: FDA-Public Use
  Company Number: None

PATIENT
  Age: 14 Year
  Sex: Male
  Weight: 38.4 kg

DRUGS (1)
  1. COMBIVENT [Suspect]
     Active Substance: ALBUTEROL SULFATE\IPRATROPIUM BROMIDE
     Indication: BRONCHIAL DISORDER
     Dosage: 1 PUFF; RESPIRATORY
     Route: 055
     Dates: start: 20141007, end: 20141007

REACTIONS (5)
  - Euphoric mood [None]
  - Crying [None]
  - Hallucination [None]
  - Movement disorder [None]
  - Dizziness [None]

NARRATIVE: CASE EVENT DATE: 20141007
